FAERS Safety Report 7256301-5 (Version None)
Quarter: 2011Q1

REPORT INFORMATION
  Report Type: 
  Country: None (occurrence: None)
  Receive Date: 20110129
  Receipt Date: 20100601
  Transmission Date: 20110831
  Serious: Yes (Other)
  Sender: FDA-Public Use
  Company Number: US-ABBOTT-10P-163-0648981-00

PATIENT
  Sex: Female
  Weight: 90.8 kg

DRUGS (24)
  1. PHENERGAN [Concomitant]
     Indication: PRODUCT USED FOR UNKNOWN INDICATION
     Route: 048
  2. PRILOSEC [Concomitant]
     Indication: PRODUCT USED FOR UNKNOWN INDICATION
     Dosage: AT HOUR OF SLEEP
     Route: 048
  3. LISINOPRIL [Concomitant]
     Indication: PRODUCT USED FOR UNKNOWN INDICATION
     Route: 048
  4. OPIUM TINCTURE [Concomitant]
     Indication: DIARRHOEA
     Dosage: 10MG/ML AS NEEDED EVERY 8 HOURS
  5. NEXIUM [Concomitant]
     Indication: PRODUCT USED FOR UNKNOWN INDICATION
     Route: 058
  6. TOPROL-XL [Concomitant]
     Indication: PRODUCT USED FOR UNKNOWN INDICATION
     Route: 048
  7. REQUIP [Concomitant]
     Indication: PRODUCT USED FOR UNKNOWN INDICATION
     Dosage: TAKES TWO 1MG TABS BID
     Route: 048
  8. METFORMIN [Concomitant]
     Indication: PRODUCT USED FOR UNKNOWN INDICATION
     Route: 048
  9. MAGNESIUM OXIDE [Concomitant]
     Indication: PRODUCT USED FOR UNKNOWN INDICATION
     Route: 048
  10. VOLTAREN [Concomitant]
     Indication: PRODUCT USED FOR UNKNOWN INDICATION
     Dosage: 1 PERCENT GEL
     Route: 061
  11. ZETIA [Concomitant]
     Indication: PRODUCT USED FOR UNKNOWN INDICATION
     Route: 048
  12. ZYRTEC [Concomitant]
     Indication: PRODUCT USED FOR UNKNOWN INDICATION
     Route: 048
  13. COUMADIN [Concomitant]
     Indication: PRODUCT USED FOR UNKNOWN INDICATION
     Dosage: AT HOUR OF SLEEP
     Route: 048
  14. VITAMIN B-12 [Concomitant]
     Indication: PRODUCT USED FOR UNKNOWN INDICATION
     Route: 048
  15. TRICOR [Concomitant]
     Indication: PRODUCT USED FOR UNKNOWN INDICATION
     Dosage: AT HOUR OF SLEEP
     Route: 048
  16. FENTANYL [Concomitant]
     Indication: PRODUCT USED FOR UNKNOWN INDICATION
     Dosage: PATCH CHANGES EVERY 72 HOURS.  AS STATED BY PATIENT RECEIVES 50 MCG PER HOUR.
     Route: 061
  17. ZANAFLEX [Concomitant]
     Indication: PRODUCT USED FOR UNKNOWN INDICATION
     Dosage: AS NEEDED EVERY 8 HOURS
  18. LORTAB [Concomitant]
     Indication: PAIN
     Dosage: 10/325MG AS NEEDED
  19. VITAMIN D [Concomitant]
     Indication: PRODUCT USED FOR UNKNOWN INDICATION
     Route: 048
  20. MELATONIN [Concomitant]
     Indication: PRODUCT USED FOR UNKNOWN INDICATION
     Dosage: AT HOUR OF SLEEP
     Route: 048
  21. SYNTHROID [Concomitant]
     Indication: PRODUCT USED FOR UNKNOWN INDICATION
     Route: 048
  22. HUMIRA [Suspect]
     Indication: CROHN'S DISEASE
     Dosage: LAST DOSE OF HUMIRA WAS ON 20 MAY 2010.
     Route: 058
     Dates: end: 20100526
  23. CYMBALTA [Concomitant]
     Indication: PRODUCT USED FOR UNKNOWN INDICATION
     Route: 048
  24. THERAGRAN 50 PLUS [Concomitant]
     Indication: PRODUCT USED FOR UNKNOWN INDICATION
     Route: 048

REACTIONS (4)
  - PAIN [None]
  - MIDDLE INSOMNIA [None]
  - FATIGUE [None]
  - LUPUS-LIKE SYNDROME [None]
